FAERS Safety Report 5930536-3 (Version None)
Quarter: 2008Q4

REPORT INFORMATION
  Report Type: 
  Country: None (occurrence: None)
  Receive Date: 20081026
  Receipt Date: 20081020
  Transmission Date: 20090506
  Serious: Yes (Other)
  Sender: FDA-Public Use
  Company Number: PHBS2008MX06092

PATIENT
  Age: 8 Month
  Sex: Male

DRUGS (1)
  1. CYCLOSPORINE [Suspect]
     Indication: LIVER TRANSPLANT

REACTIONS (4)
  - ELECTROENCEPHALOGRAM ABNORMAL [None]
  - HEADACHE [None]
  - MENTAL STATUS CHANGES [None]
  - VISUAL IMPAIRMENT [None]
